FAERS Safety Report 4618358-7 (Version None)
Quarter: 2005Q1

REPORT INFORMATION
  Report Type: 
  Country: None (occurrence: None)
  Receive Date: 20050324
  Receipt Date: 20050317
  Transmission Date: 20050727
  Serious: Yes (Hospitalization)
  Sender: FDA-Public Use
  Company Number: US-MERCK-0503USA03019

PATIENT
  Age: 43 Year
  Sex: Male

DRUGS (5)
  1. COGENTIN [Suspect]
     Route: 048
  2. COGENTIN [Suspect]
     Route: 048
  3. CLOZAPINE [Suspect]
     Indication: SCHIZOPHRENIA
     Route: 048
     Dates: start: 20010101
  4. CLONAZEPAM [Suspect]
     Route: 048
  5. LEXAPRO [Suspect]
     Route: 048

REACTIONS (2)
  - CONSTIPATION [None]
  - INTESTINAL OBSTRUCTION [None]
